FAERS Safety Report 4443955-1 (Version None)
Quarter: 2004Q3

REPORT INFORMATION
  Report Type: 
  Country: None (occurrence: None)
  Receive Date: 20040729
  Receipt Date: 20030718
  Transmission Date: 20050211
  Serious: Yes (Hospitalization)
  Sender: FDA-Public Use
  Company Number: US-JNJFOC-20030705444

PATIENT
  Age: 85 Year
  Sex: Female

DRUGS (3)
  1. RISPERDAL [Suspect]
     Indication: ANXIETY
     Dosage: 1 MG, 1 IN 1 DAY, ORAL
     Route: 048
  2. PAXIL [Concomitant]
  3. TEGRETOL [Concomitant]

REACTIONS (3)
  - DIFFICULTY IN WALKING [None]
  - FLAT AFFECT [None]
  - PNEUMONIA [None]
